FAERS Safety Report 6685184-7 (Version None)
Quarter: 2010Q2

REPORT INFORMATION
  Report Type: 
  Country: None (occurrence: None)
  Receive Date: 20100416
  Receipt Date: 20100406
  Transmission Date: 20101027
  Serious: Yes (Other)
  Sender: FDA-Public Use
  Company Number: JP-ELI_LILLY_AND_COMPANY-JP200912001332

PATIENT
  Age: 70 Year
  Sex: Male

DRUGS (4)
  1. ALIMTA [Suspect]
     Indication: PLEURAL MESOTHELIOMA MALIGNANT
     Dosage: 500 MG/M2, UNK
     Route: 042
  2. CISPLATIN [Concomitant]
     Indication: PLEURAL MESOTHELIOMA MALIGNANT
     Dosage: 60 MG/M2, UNK
     Route: 042
  3. METHYCOBAL [Concomitant]
     Route: 042
  4. PANVITAN [Concomitant]
     Route: 048

REACTIONS (1)
  - ANAEMIA MACROCYTIC [None]
